FAERS Safety Report 9512354 (Version 6)
Quarter: 2014Q2

REPORT INFORMATION
  Report Type: Report from Study
  Country: FR (occurrence: FR)
  Receive Date: 20130910
  Receipt Date: 20140407
  Transmission Date: 20141212
  Serious: Yes (Hospitalization)
  Sender: FDA-Public Use
  Company Number: FR-PFIZER INC-2013249229

PATIENT
  Age: 72 Year
  Sex: Male

DRUGS (7)
  1. TORISEL [Suspect]
     Indication: METASTATIC CARCINOID TUMOUR
     Dosage: 25 MG, CYCLIC (1/7 DAYS (C1J1))
     Route: 042
     Dates: start: 20130605
  2. ERBITUX [Suspect]
     Indication: METASTATIC CARCINOID TUMOUR
     Dosage: 400 MG/M2 (C1J7)
     Route: 042
     Dates: start: 20130530
  3. ERBITUX [Suspect]
     Dosage: 250 MG/M2, CORRESPONDING TO 500MG, (C1J1)
     Route: 042
     Dates: start: 20130605
  4. DEROXAT [Concomitant]
     Dosage: UNK
  5. DOXYCYCLINE [Concomitant]
     Dosage: UNK
  6. STILNOX [Concomitant]
     Dosage: UNK
  7. MAGNE-B6 [Concomitant]
     Dosage: UNK

REACTIONS (2)
  - Confusional state [Recovered/Resolved]
  - Adenovirus infection [Recovered/Resolved]
